FAERS Safety Report 10928447 (Version 1)
Quarter: 2015Q1

REPORT INFORMATION
  Report Type: Report from Study
  Country: US (occurrence: US)
  Receive Date: 20150319
  Receipt Date: 20150319
  Transmission Date: 20150721
  Serious: Yes (Other)
  Sender: FDA-Public Use
  Company Number: US-JNJFOC-20150308987

PATIENT
  Age: 16 Year
  Sex: Female
  Weight: 49.9 kg

DRUGS (4)
  1. REMICADE [Suspect]
     Active Substance: INFLIXIMAB
     Indication: COLITIS ULCERATIVE
     Route: 042
     Dates: start: 200804, end: 201403
  2. 6MP [Concomitant]
     Active Substance: MERCAPTOPURINE
     Route: 065
  3. REMICADE [Suspect]
     Active Substance: INFLIXIMAB
     Indication: COLITIS ULCERATIVE
     Route: 042
     Dates: start: 201403, end: 201405
  4. ASACOL [Concomitant]
     Active Substance: MESALAMINE
     Route: 065

REACTIONS (5)
  - Immobile [Recovered/Resolved]
  - Urticaria [Recovered/Resolved]
  - Anal haemorrhage [Not Recovered/Not Resolved]
  - Infusion related reaction [Recovered/Resolved]
  - Arthralgia [Recovered/Resolved]

NARRATIVE: CASE EVENT DATE: 201403
